FAERS Safety Report 21725554 (Version 1)
Quarter: 2022Q4

REPORT INFORMATION
  Report Type: Spontaneous
  Country: FR (occurrence: FR)
  Receive Date: 20221214
  Receipt Date: 20221214
  Transmission Date: 20230113
  Serious: Yes (Disabling)
  Sender: FDA-Public Use
  Company Number: None

PATIENT
  Age: 43 Year
  Sex: Male
  Weight: 83 kg

DRUGS (2)
  1. RITUXIMAB [Suspect]
     Active Substance: RITUXIMAB
     Indication: Leukaemia
     Dosage: 4 CYCLES TOTAL
     Route: 042
     Dates: start: 20200708, end: 20200729
  2. LEUSTATIN [Suspect]
     Active Substance: CLADRIBINE
     Indication: Leukaemia
     Route: 065
     Dates: start: 20200824, end: 20200828

REACTIONS (2)
  - Sensorimotor disorder [Not Recovered/Not Resolved]
  - Musculoskeletal pain [Not Recovered/Not Resolved]

NARRATIVE: CASE EVENT DATE: 20201201
